FAERS Safety Report 24019323 (Version 1)
Quarter: 2024Q2

REPORT INFORMATION
  Report Type: Spontaneous
  Country: KR (occurrence: KR)
  Receive Date: 20240627
  Receipt Date: 20240627
  Transmission Date: 20240716
  Serious: Yes (Death, Hospitalization)
  Sender: FDA-Public Use
  Company Number: KR-SAMSUNG BIOEPIS-SB-2024-15823

PATIENT
  Age: 57 Year
  Sex: Female
  Weight: 70.4 kg

DRUGS (45)
  1. TRASTUZUMAB [Suspect]
     Active Substance: TRASTUZUMAB
     Indication: Gallbladder cancer
     Route: 042
     Dates: start: 20230927, end: 20240511
  2. NIVOLUMAB [Suspect]
     Active Substance: NIVOLUMAB
     Indication: Gallbladder cancer
     Route: 042
     Dates: start: 20230927, end: 20240429
  3. GEMCITABINE [Suspect]
     Active Substance: GEMCITABINE
     Indication: Gallbladder cancer
     Route: 042
     Dates: start: 20230927, end: 20240510
  4. CISPLATIN [Suspect]
     Active Substance: CISPLATIN
     Indication: Gallbladder cancer
     Route: 042
     Dates: start: 20230927, end: 20240510
  5. URSODIOL [Concomitant]
     Active Substance: URSODIOL
     Indication: Product used for unknown indication
     Route: 065
     Dates: start: 20230925
  6. LOPERAMIDE HYDROCHLORIDE [Concomitant]
     Active Substance: LOPERAMIDE HYDROCHLORIDE
     Indication: Product used for unknown indication
     Route: 065
     Dates: start: 20230927
  7. NOZYME [Concomitant]
     Indication: Product used for unknown indication
     Dosage: NOZYME 25000 PRN
     Route: 065
     Dates: start: 20230925
  8. SODIUM BICARBONATE [Concomitant]
     Active Substance: SODIUM BICARBONATE
     Indication: Product used for unknown indication
     Dosage: PRN
     Route: 065
     Dates: start: 20230927
  9. MAGNESIUM SULFATE [Concomitant]
     Active Substance: MAGNESIUM SULFATE\MAGNESIUM SULFATE HEPTAHYDRATE
     Indication: Product used for unknown indication
     Dosage: PRN
     Route: 065
     Dates: start: 20230927
  10. Godex [Concomitant]
     Indication: Product used for unknown indication
     Route: 065
     Dates: start: 20230925
  11. OXYCODONE HYDROCHLORIDE [Concomitant]
     Active Substance: OXYCODONE HYDROCHLORIDE
     Indication: Product used for unknown indication
     Dosage: PRN
     Route: 065
     Dates: start: 20230925
  12. OXYCODONE HYDROCHLORIDE [Concomitant]
     Active Substance: OXYCODONE HYDROCHLORIDE
     Dosage: PRN
     Route: 065
     Dates: start: 20240429
  13. ORNITHINE ASPARTATE [Concomitant]
     Active Substance: ORNITHINE ASPARTATE
     Indication: Product used for unknown indication
     Dosage: ONCE
     Route: 065
  14. METOCLOPRAMIDE HYDROCHLORIDE [Concomitant]
     Active Substance: METOCLOPRAMIDE HYDROCHLORIDE
     Indication: Product used for unknown indication
     Dosage: PRN
     Route: 065
     Dates: start: 20230925
  15. MAGMIL S [Concomitant]
     Indication: Product used for unknown indication
     Dosage: PRN
     Route: 065
     Dates: start: 20230927
  16. Sama tantum solution [Concomitant]
     Indication: Product used for unknown indication
     Dosage: PRN
     Dates: start: 20230927
  17. ALOXI [Concomitant]
     Active Substance: PALONOSETRON HYDROCHLORIDE
     Indication: Product used for unknown indication
     Dosage: PRN
     Dates: start: 20230927
  18. DEXAMETHASONE [Concomitant]
     Active Substance: DEXAMETHASONE
     Indication: Product used for unknown indication
     Dosage: PRN
     Route: 065
     Dates: start: 20230927
  19. LASIX [Concomitant]
     Active Substance: FUROSEMIDE
     Indication: Product used for unknown indication
     Route: 065
     Dates: start: 20230927
  20. Greencross Human Serum Albumin [Concomitant]
     Indication: Product used for unknown indication
     Dosage: 20% 100ML PRN
     Route: 065
  21. Harmonilan solution [Concomitant]
     Indication: Product used for unknown indication
     Dosage: PRN
     Route: 065
     Dates: start: 20230927
  22. Daewon morphine sulfate hydrate [Concomitant]
     Indication: Product used for unknown indication
     Dosage: PRN
     Route: 065
     Dates: start: 20230927
  23. Daewon morphine sulfate hydrate [Concomitant]
     Route: 065
     Dates: start: 20240429
  24. Guju Spirodacton [Concomitant]
     Indication: Product used for unknown indication
     Route: 065
     Dates: start: 20230927
  25. LASIX [Concomitant]
     Active Substance: FUROSEMIDE
     Indication: Product used for unknown indication
     Dosage: PRN
     Route: 065
     Dates: start: 20230927
  26. LASIX [Concomitant]
     Active Substance: FUROSEMIDE
     Dosage: PRN
     Route: 065
     Dates: start: 20240116
  27. METOCLOPRAMIDE HYDROCHLORIDE [Concomitant]
     Active Substance: METOCLOPRAMIDE HYDROCHLORIDE
     Indication: Product used for unknown indication
     Dosage: PRN
     Route: 065
     Dates: start: 20230927
  28. Jeil pethidine hydrochloride [Concomitant]
     Indication: Product used for unknown indication
     Dosage: 25MG/0.5ML PRN
     Route: 065
     Dates: start: 20230928
  29. ALBUMIN HUMAN [Concomitant]
     Active Substance: ALBUMIN HUMAN
     Indication: Product used for unknown indication
     Dosage: PRN
     Route: 065
     Dates: start: 20231004
  30. MEGACE F [Concomitant]
     Indication: Product used for unknown indication
     Dosage: PRN
     Dates: start: 20231011
  31. AKYNZEO [Concomitant]
     Indication: Product used for unknown indication
     Dosage: PRN
     Route: 065
     Dates: start: 20231122
  32. Mucosta SR [Concomitant]
     Indication: Product used for unknown indication
     Dosage: PRN
     Dates: start: 20231227
  33. Targin PR [Concomitant]
     Indication: Product used for unknown indication
     Dosage: 10/5MG PRN
     Route: 065
     Dates: start: 20240429
  34. ULTRACET [Concomitant]
     Active Substance: ACETAMINOPHEN\TRAMADOL HYDROCHLORIDE
     Indication: Product used for unknown indication
     Dosage: PRN
     Route: 065
     Dates: start: 20240429
  35. NEURONTIN [Concomitant]
     Active Substance: GABAPENTIN
     Indication: Product used for unknown indication
     Dosage: PRN
     Route: 065
     Dates: start: 20240429
  36. PENIRAMIN [Concomitant]
     Indication: Product used for unknown indication
     Route: 065
     Dates: start: 20240508
  37. PENIRAMIN [Concomitant]
     Route: 065
     Dates: start: 20240510
  38. PENIRAMIN [Concomitant]
     Route: 065
     Dates: start: 20240514
  39. PENIRAMIN [Concomitant]
     Route: 065
     Dates: start: 20240516
  40. Packed RBC [Concomitant]
     Indication: Product used for unknown indication
     Dosage: TRANSFUSION
     Route: 065
     Dates: start: 20240508
  41. PLT Conc [Concomitant]
     Indication: Product used for unknown indication
     Route: 065
     Dates: start: 20240510
  42. PLT Conc [Concomitant]
     Route: 065
     Dates: start: 20240514
  43. PLT Conc [Concomitant]
     Route: 065
     Dates: start: 20240516
  44. Filtered RBC [Concomitant]
     Indication: Product used for unknown indication
     Route: 065
     Dates: start: 20240514
  45. TRANSAMIN [Concomitant]
     Active Substance: TRANEXAMIC ACID
     Indication: Product used for unknown indication
     Route: 065
     Dates: start: 20240514

REACTIONS (4)
  - Disease progression [Fatal]
  - Multiple organ dysfunction syndrome [Fatal]
  - Acute kidney injury [Not Recovered/Not Resolved]
  - Product use in unapproved indication [Unknown]

NARRATIVE: CASE EVENT DATE: 20240519
